FAERS Safety Report 11745804 (Version 1)
Quarter: 2015Q4

REPORT INFORMATION
  Report Type: Spontaneous
  Country: US (occurrence: None)
  Receive Date: 20151116
  Receipt Date: 20151116
  Transmission Date: 20160304
  Serious: Yes (Other)
  Sender: FDA-Public Use
  Company Number: None

PATIENT
  Age: 66 Year
  Sex: Female
  Weight: 79.83 kg

DRUGS (7)
  1. TRAMADOL. [Concomitant]
     Active Substance: TRAMADOL
  2. VITAMIN D [Concomitant]
     Active Substance: CHOLECALCIFEROL
  3. FISH OIL [Concomitant]
     Active Substance: FISH OIL
  4. GARLIC PILLS [Concomitant]
  5. ZETIA [Concomitant]
     Active Substance: EZETIMIBE
  6. BABY ASPIRIN [Concomitant]
     Active Substance: ASPIRIN
  7. OXTELLAR XR [Suspect]
     Active Substance: OXCARBAZEPINE
     Indication: NEUROPATHY PERIPHERAL
     Dosage: 1 PILL
     Route: 048

REACTIONS (5)
  - Restlessness [None]
  - Hyperhidrosis [None]
  - Insomnia [None]
  - No therapeutic response [None]
  - Anxiety [None]

NARRATIVE: CASE EVENT DATE: 20151112
